FAERS Safety Report 6231889-1 (Version None)
Quarter: 2009Q2

REPORT INFORMATION
  Report Type: 
  Country: None (occurrence: None)
  Receive Date: 20090616
  Receipt Date: 20090608
  Transmission Date: 20091009
  Serious: Yes (Death, Other)
  Sender: FDA-Public Use
  Company Number: KR-BRISTOL-MYERS SQUIBB COMPANY-14653869

PATIENT
  Age: 70 Year
  Sex: Female

DRUGS (3)
  1. CEFEPIME [Suspect]
     Indication: FEBRILE NEUTROPENIA
  2. VANCOMYCIN HCL [Suspect]
     Indication: FEBRILE NEUTROPENIA
  3. IMIPENEM [Suspect]
     Indication: FEBRILE NEUTROPENIA

REACTIONS (2)
  - BACTERAEMIA [None]
  - TREATMENT FAILURE [None]
